FAERS Safety Report 15103436 (Version 2)
Quarter: 2018Q3

REPORT INFORMATION
  Report Type: Spontaneous
  Country: US (occurrence: US)
  Receive Date: 20180703
  Receipt Date: 20180717
  Transmission Date: 20181010
  Serious: Yes (Death, Other)
  Sender: FDA-Public Use
  Company Number: US-NAPPMUNDI-USA-2018-0143832

PATIENT
  Age: 38 Year
  Sex: Male
  Weight: 94.33 kg

DRUGS (4)
  1. OXYCODONE HYDROCHLORIDE (SIMILAR TO NDA 22?272) [Suspect]
     Active Substance: OXYCODONE HYDROCHLORIDE
     Indication: PRODUCT USED FOR UNKNOWN INDICATION
     Route: 048
  2. ALCOHOL. [Suspect]
     Active Substance: ALCOHOL
     Indication: PRODUCT USED FOR UNKNOWN INDICATION
     Route: 048
  3. METHAMPHETAMINE [Suspect]
     Active Substance: METHAMPHETAMINE
     Indication: PRODUCT USED FOR UNKNOWN INDICATION
     Route: 048
  4. CANNABIS [Suspect]
     Active Substance: CANNABIS SATIVA SUBSP. INDICA TOP
     Indication: PRODUCT USED FOR UNKNOWN INDICATION
     Route: 048

REACTIONS (9)
  - Road traffic accident [Unknown]
  - Injury [Fatal]
  - Cervical vertebral fracture [Unknown]
  - Skull fracture [Unknown]
  - Traumatic lung injury [Unknown]
  - Rib fracture [Unknown]
  - Haemothorax [Unknown]
  - Substance abuse [Not Recovered/Not Resolved]
  - Avulsion fracture [Unknown]

NARRATIVE: CASE EVENT DATE: 20180131
